FAERS Safety Report 22186767 (Version 1)
Quarter: 2023Q2

REPORT INFORMATION
  Report Type: Spontaneous
  Country: CN (occurrence: CN)
  Receive Date: 20230407
  Receipt Date: 20230407
  Transmission Date: 20230721
  Serious: Yes (Other)
  Sender: FDA-Public Use
  Company Number: CN-009507513-2304CHN001316

PATIENT
  Age: 81 Year
  Sex: Male
  Weight: 44.5 kg

DRUGS (4)
  1. CILASTATIN SODIUM\IMIPENEM [Suspect]
     Active Substance: CILASTATIN SODIUM\IMIPENEM
     Indication: Pneumonia
     Dosage: 0.5 GRAM, THREE TIMES A DAY (TID)
     Route: 041
     Dates: start: 20230320, end: 20230324
  2. FLUCONAZOLE [Suspect]
     Active Substance: FLUCONAZOLE
     Indication: Pneumonia
     Dosage: 0.4 GRAM, ONCE DAILY (QD)
     Route: 041
     Dates: start: 20230319, end: 20230324
  3. MEROPENEM [Suspect]
     Active Substance: MEROPENEM
     Indication: Pneumonia
     Dosage: 0.5 GRAM, THREE TIMES A DAY (TID)
     Route: 041
     Dates: start: 20230320, end: 20230320
  4. METHYLPREDNISOLONE SODIUM SUCCINATE [Suspect]
     Active Substance: METHYLPREDNISOLONE SODIUM SUCCINATE
     Indication: Pneumonia
     Dosage: 40 MILLIGRAM, TWICE A DAY (BID)
     Route: 041
     Dates: start: 20230320, end: 20230324

REACTIONS (4)
  - Intentional self-injury [Recovering/Resolving]
  - Depressed mood [Recovering/Resolving]
  - Impulse-control disorder [Recovering/Resolving]
  - Mental disorder [Recovering/Resolving]

NARRATIVE: CASE EVENT DATE: 20230323
